FAERS Safety Report 12430919 (Version 3)
Quarter: 2018Q1

REPORT INFORMATION
  Report Type: Spontaneous
  Country: US (occurrence: US)
  Receive Date: 20160602
  Receipt Date: 20180322
  Transmission Date: 20180508
  Serious: Yes (Hospitalization)
  Sender: FDA-Public Use
  Company Number: US-ASTRAZENECA-2016SE57735

PATIENT
  Age: 701 Month
  Sex: Female
  Weight: 53.5 kg

DRUGS (6)
  1. OXYGEN. [Concomitant]
     Active Substance: OXYGEN
     Dosage: 1.5L CONTINUOUSLY
     Route: 045
  2. TUDORZA PRESSAIR [Suspect]
     Active Substance: ACLIDINIUM BROMIDE
     Indication: CHRONIC OBSTRUCTIVE PULMONARY DISEASE
     Route: 055
     Dates: start: 201502
  3. TUDORZA PRESSAIR [Suspect]
     Active Substance: ACLIDINIUM BROMIDE
     Indication: PULMONARY VALVE DISEASE
     Route: 055
     Dates: start: 201502
  4. VENTOLIN [Concomitant]
     Active Substance: ALBUTEROL SULFATE
     Indication: DYSPNOEA
     Dosage: 1.0DF AS REQUIRED
     Route: 055
  5. SYMBICORT [Suspect]
     Active Substance: BUDESONIDE\FORMOTEROL FUMARATE DIHYDRATE
     Indication: CHRONIC OBSTRUCTIVE PULMONARY DISEASE
     Dosage: 160/4.5 UG TWO PUFFS TWICE A DAY
     Route: 055
     Dates: start: 2011
  6. MULTIVITAMIN [Concomitant]
     Active Substance: VITAMINS
     Dosage: DAILY
     Route: 048

REACTIONS (6)
  - Pulmonary valve disease [Unknown]
  - Pneumonia [Recovered/Resolved]
  - Lung disorder [Unknown]
  - Intentional product misuse [Unknown]
  - Dyspnoea [Unknown]
  - Device issue [Unknown]

NARRATIVE: CASE EVENT DATE: 201305
